FAERS Safety Report 4396998-0 (Version None)
Quarter: 2004Q3

REPORT INFORMATION
  Report Type: 
  Country: None (occurrence: None)
  Receive Date: 20040714
  Receipt Date: 20040528
  Transmission Date: 20050211
  Serious: Yes (Death, Other)
  Sender: FDA-Public Use
  Company Number: PHBS2004JP07026

PATIENT
  Age: 77 Year
  Sex: Male

DRUGS (2)
  1. CYCLOSPORINE [Suspect]
     Indication: APLASTIC ANAEMIA
     Dosage: 300 MG/D
     Route: 048
  2. ATGAM [Suspect]
     Indication: APLASTIC ANAEMIA
     Dosage: 10 MG/KG/D
     Route: 065

REACTIONS (2)
  - OESOPHAGEAL CARCINOMA RECURRENT [None]
  - TUBERCULOSIS [None]
